FAERS Safety Report 21633142 (Version 1)
Quarter: 2022Q4

REPORT INFORMATION
  Report Type: Spontaneous
  Country: US (occurrence: US)
  Receive Date: 20221123
  Receipt Date: 20221123
  Transmission Date: 20230112
  Serious: No
  Sender: FDA-Public Use
  Company Number: US-PFIZER INC-202201318802

PATIENT
  Age: 55 Year
  Sex: Female

DRUGS (1)
  1. IBRANCE [Suspect]
     Active Substance: PALBOCICLIB
     Dosage: ONCE DAILY FOR 21 DAYS, THEN 7 DAYS OFF
     Dates: start: 20221105

REACTIONS (3)
  - Fatigue [Unknown]
  - Myalgia [Unknown]
  - Abdominal discomfort [Unknown]
